FAERS Safety Report 9813195 (Version 2)
Quarter: 2014Q1

REPORT INFORMATION
  Report Type: Report from Study
  Country: US (occurrence: US)
  Receive Date: 20140113
  Receipt Date: 20140113
  Transmission Date: 20141002
  Serious: Yes (Death, Hospitalization, Other)
  Sender: FDA-Public Use
  Company Number: US-ROCHE-772057

PATIENT
  Age: 57 Year
  Sex: Female

DRUGS (5)
  1. OXALIPLATIN [Suspect]
     Indication: GASTRIC CANCER
     Dosage: 85 MG/M2, Q14D
     Route: 042
  2. FOLINIC ACID [Suspect]
     Indication: GASTRIC CANCER
     Dosage: 200 MG/M2, Q14D
     Route: 042
  3. FLUOROURACIL [Suspect]
     Indication: GASTRIC CANCER
     Dosage: 2400 MG/M2, QDX2D/14DC
     Route: 042
  4. VISMODEGIB [Suspect]
     Indication: GASTRIC CANCER
     Dosage: 150 MG, QD
     Route: 048
     Dates: start: 20100510, end: 20100621
  5. VISMODEGIB [Suspect]
     Dosage: 150 MG, QD
     Route: 048
     Dates: start: 20100510, end: 20100621

REACTIONS (3)
  - Dyspnoea [Fatal]
  - Haemoglobin decreased [Unknown]
  - Anaemia [Unknown]
